FAERS Safety Report 8970755 (Version 1)
Quarter: 2012Q4

REPORT INFORMATION
  Report Type: 
  Country: IE (occurrence: IE)
  Receive Date: 20121218
  Receipt Date: 20121218
  Transmission Date: 20130627
  Serious: Yes (Death, Other)
  Sender: FDA-Public Use
  Company Number: IE-009507513-2012SP001121

PATIENT
  Sex: Female

DRUGS (2)
  1. NOXAFIL [Suspect]
     Indication: PRODUCT USED FOR UNKNOWN INDICATION
  2. CANCIDAS [Suspect]
     Indication: PRODUCT USED FOR UNKNOWN INDICATION
     Route: 041

REACTIONS (2)
  - Aspergillosis [Fatal]
  - Acute lymphocytic leukaemia [Unknown]
